FAERS Safety Report 16709057 (Version 3)
Quarter: 2020Q2

REPORT INFORMATION
  Report Type: Spontaneous
  Country: AR (occurrence: AR)
  Receive Date: 20190816
  Receipt Date: 20200617
  Transmission Date: 20200713
  Serious: Yes (Hospitalization, Other)
  Sender: FDA-Public Use
  Company Number: AR-BRISTOL-MYERS SQUIBB COMPANY-BMS-2019-078731

PATIENT
  Sex: Male
  Weight: 64 kg

DRUGS (1)
  1. OPDIVO [Suspect]
     Active Substance: NIVOLUMAB
     Indication: PRODUCT USED FOR UNKNOWN INDICATION
     Dosage: 200 MILLIGRAM, Q2WK
     Route: 042
     Dates: start: 201902, end: 2019

REACTIONS (5)
  - Myiasis [Recovered/Resolved]
  - Off label use [Unknown]
  - Wound [Unknown]
  - Weight decreased [Unknown]
  - Pain [Unknown]
